FAERS Safety Report 8458152-2 (Version None)
Quarter: 2012Q2

REPORT INFORMATION
  Report Type: 
  Country: None (occurrence: None)
  Receive Date: 20120622
  Receipt Date: 20120620
  Transmission Date: 20120825
  Serious: No
  Sender: FDA-Public Use
  Company Number: US-TEVA-344404USA

PATIENT
  Sex: Male
  Weight: 99.88 kg

DRUGS (6)
  1. SOLIFENACIN SUCCINATE [Concomitant]
  2. PRAVASTATIN [Concomitant]
  3. NUVIGIL [Suspect]
     Indication: HYPERSOMNIA
  4. PRAMIPEXOLE [Concomitant]
     Indication: RESTLESS LEGS SYNDROME
  5. NUVIGIL [Suspect]
     Indication: SLEEP APNOEA SYNDROME
     Route: 048
  6. FENOFIBRATE [Concomitant]

REACTIONS (3)
  - DRUG EFFECT DELAYED [None]
  - INSOMNIA [None]
  - FEELING ABNORMAL [None]
